FAERS Safety Report 5837640-9 (Version None)
Quarter: 2008Q3

REPORT INFORMATION
  Report Type: 
  Country: None (occurrence: None)
  Receive Date: 20080807
  Receipt Date: 20080801
  Transmission Date: 20090109
  Serious: Yes (Other)
  Sender: FDA-Public Use
  Company Number: PHHY2008GB15097

PATIENT
  Sex: Female

DRUGS (3)
  1. TEGRETOL [Suspect]
     Indication: EPILEPSY
     Dosage: UNK
     Dates: start: 20050401
  2. FOLIC ACID [Concomitant]
     Indication: ANAEMIA
     Dosage: 5 MG, UNK
     Route: 048
  3. COD-LIVER OIL [Concomitant]

REACTIONS (1)
  - ACANTHOSIS NIGRICANS [None]
